FAERS Safety Report 24647858 (Version 1)
Quarter: 2024Q4

REPORT INFORMATION
  Report Type: Report from Study
  Country: SE (occurrence: SE)
  Receive Date: 20241121
  Receipt Date: 20241121
  Transmission Date: 20250114
  Serious: Yes (Other)
  Sender: ELI LILLY AND COMPANY
  Company Number: SE-ELI_LILLY_AND_COMPANY-SE202411006840

PATIENT
  Sex: Female

DRUGS (10)
  1. OLUMIANT [Suspect]
     Active Substance: BARICITINIB
     Indication: CANDLE syndrome
     Dosage: 0.4 MG/KG, DAILY
     Route: 065
  2. OLUMIANT [Suspect]
     Active Substance: BARICITINIB
     Dosage: 0.34 MG/KG, UNKNOWN
     Route: 065
     Dates: start: 20220209
  3. OLUMIANT [Suspect]
     Active Substance: BARICITINIB
     Dosage: 0.47 MG/KG, UNKNOWN
     Route: 065
     Dates: start: 20230113
  4. OLUMIANT [Suspect]
     Active Substance: BARICITINIB
     Dosage: 0.1 MG/KG, UNKNOWN
     Route: 065
  5. OLUMIANT [Suspect]
     Active Substance: BARICITINIB
     Dosage: 0.04 MG/KG, UNKNOWN
     Route: 065
  6. OLUMIANT [Suspect]
     Active Substance: BARICITINIB
     Dosage: 0.16 MG/KG, UNKNOWN
     Route: 065
  7. OLUMIANT [Suspect]
     Active Substance: BARICITINIB
     Dosage: 0.19 MG/KG, UNKNOWN
     Route: 065
  8. OLUMIANT [Suspect]
     Active Substance: BARICITINIB
     Dosage: 0.1 MG/KG, UNKNOWN
     Route: 065
  9. ANIFROLUMAB [Concomitant]
     Active Substance: ANIFROLUMAB
     Indication: Immunosuppression
     Dosage: 5.5 MG/KG, UNKNOWN
     Route: 065
  10. ANIFROLUMAB [Concomitant]
     Active Substance: ANIFROLUMAB
     Indication: Antiinflammatory therapy

REACTIONS (7)
  - Pneumocystis jirovecii pneumonia [Unknown]
  - Immunosuppression [Unknown]
  - Human herpesvirus 6 infection [Unknown]
  - Herpes simplex [Unknown]
  - Norovirus test positive [Unknown]
  - Parainfluenzae virus infection [Unknown]
  - Off label use [Unknown]
